FAERS Safety Report 5079797-6 (Version None)
Quarter: 2006Q3

REPORT INFORMATION
  Report Type: 
  Country: None (occurrence: None)
  Receive Date: 20060815
  Receipt Date: 20060804
  Transmission Date: 20061208
  Serious: Yes (Other)
  Sender: FDA-Public Use
  Company Number: PHBS2006JP11836

PATIENT
  Age: 65 Year
  Sex: Female

DRUGS (5)
  1. ZOMETA [Suspect]
     Indication: METASTASES TO BONE
     Route: 065
     Dates: start: 20060701
  2. AREDIA [Suspect]
     Route: 065
  3. NAVELBINE [Concomitant]
     Route: 065
  4. HYSRON [Concomitant]
     Route: 065
  5. DOCETAXEL [Concomitant]

REACTIONS (6)
  - OSTEOMYELITIS [None]
  - OSTEONECROSIS [None]
  - PAIN IN JAW [None]
  - RASH PUSTULAR [None]
  - SWELLING [None]
  - TOOTH LOSS [None]
